FAERS Safety Report 5289475-6 (Version None)
Quarter: 2007Q2

REPORT INFORMATION
  Report Type: 
  Country: None (occurrence: None)
  Receive Date: 20070402
  Receipt Date: 20070321
  Transmission Date: 20071010
  Serious: Yes (Hospitalization, Other)
  Sender: FDA-Public Use
  Company Number: 163-21880-06110156

PATIENT
  Age: 77 Year
  Sex: Male

DRUGS (2)
  1. REVLIMID [Suspect]
     Indication: MULTIPLE MYELOMA
     Dosage: SEE IMAGE
     Route: 048
     Dates: start: 20061101, end: 20070118
  2. REVLIMID [Suspect]
     Indication: MULTIPLE MYELOMA
     Dosage: SEE IMAGE
     Route: 048
     Dates: start: 20070119, end: 20070314

REACTIONS (5)
  - ARTERIAL THROMBOSIS [None]
  - CARDIAC FAILURE CONGESTIVE [None]
  - DEAFNESS [None]
  - DEEP VEIN THROMBOSIS [None]
  - DYSPHONIA [None]
